FAERS Safety Report 25734122 (Version 1)
Quarter: 2025Q3

REPORT INFORMATION
  Report Type: Spontaneous
  Country: US (occurrence: US)
  Receive Date: 20250828
  Receipt Date: 20250828
  Transmission Date: 20251021
  Serious: No
  Sender: ABBVIE
  Company Number: US-ABBVIE-6426164

PATIENT
  Sex: Female

DRUGS (2)
  1. SKYRIZI [Suspect]
     Active Substance: RISANKIZUMAB-RZAA
     Indication: Product used for unknown indication
     Route: 042
  2. SKYRIZI [Suspect]
     Active Substance: RISANKIZUMAB-RZAA
     Indication: Product used for unknown indication
     Route: 042

REACTIONS (12)
  - Myalgia [Unknown]
  - Illness [Not Recovered/Not Resolved]
  - Migraine [Unknown]
  - Contusion [Unknown]
  - Asthenia [Unknown]
  - Lymphadenopathy [Unknown]
  - Drug ineffective [Unknown]
  - Fatigue [Unknown]
  - Dizziness [Unknown]
  - Increased tendency to bruise [Unknown]
  - Asthenia [Unknown]
  - Eosinophil count increased [Unknown]
